FAERS Safety Report 10675971 (Version 1)
Quarter: 2014Q4

REPORT INFORMATION
  Report Type: Spontaneous
  Country: US (occurrence: US)
  Receive Date: 20141225
  Receipt Date: 20141225
  Transmission Date: 20150529
  Serious: Yes (Hospitalization, Other)
  Sender: FDA-Public Use
  Company Number: US-JNJFOC-20141212622

PATIENT
  Age: 16 Year
  Sex: Female

DRUGS (3)
  1. LIDOCAINE VISCOUS [Suspect]
     Active Substance: LIDOCAINE HYDROCHLORIDE
     Indication: PRODUCT USED FOR UNKNOWN INDICATION
     Dosage: 2%
     Route: 048
  2. IBUPROFEN. [Suspect]
     Active Substance: IBUPROFEN
     Indication: PRODUCT USED FOR UNKNOWN INDICATION
     Route: 048
  3. ANTITUSSIVE [Suspect]
     Active Substance: DIPHENHYDRAMINE HYDROCHLORIDE
     Indication: PRODUCT USED FOR UNKNOWN INDICATION
     Dosage: 250 TO 300 ML
     Route: 048

REACTIONS (9)
  - Somnolence [Recovered/Resolved]
  - Toxicity to various agents [Unknown]
  - Blood pressure increased [Unknown]
  - Seizure [Recovered/Resolved]
  - Agitation [Recovered/Resolved]
  - Mucosal dryness [Unknown]
  - Incoherent [Recovered/Resolved]
  - Toxic encephalopathy [Recovered/Resolved]
  - Metabolic acidosis [Unknown]
